FAERS Safety Report 14998625 (Version 1)
Quarter: 2018Q2

REPORT INFORMATION
  Report Type: Spontaneous
  Country: DE (occurrence: DE)
  Receive Date: 20180612
  Receipt Date: 20180612
  Transmission Date: 20180711
  Serious: Yes (Hospitalization)
  Sender: FDA-Public Use
  Company Number: DE-TEVA-2018-DE-904034

PATIENT
  Age: 83 Year
  Sex: Male
  Weight: 93 kg

DRUGS (6)
  1. RANOLAZIN [Suspect]
     Active Substance: RANOLAZINE
     Dosage: 375 MILLIGRAM DAILY;
  2. PROPRANOLOL [Suspect]
     Active Substance: PROPRANOLOL HYDROCHLORIDE
     Dosage: 10 MILLIGRAM DAILY;
  3. ATORVASTATIN [Concomitant]
     Active Substance: ATORVASTATIN
     Dosage: 20 MILLIGRAM DAILY;
  4. VALSARTAN. [Concomitant]
     Active Substance: VALSARTAN
     Dosage: 0-0-0.5-0
  5. CLOPIDOGREL [Concomitant]
     Active Substance: CLOPIDOGREL BISULFATE
     Dosage: 75 MILLIGRAM DAILY;
  6. ACETYLSALICYLSAEURE [Concomitant]
     Active Substance: ASPIRIN
     Dosage: 100 MILLIGRAM DAILY;

REACTIONS (2)
  - Angina pectoris [Unknown]
  - Dyspnoea [Unknown]
